FAERS Safety Report 25603156 (Version 1)
Quarter: 2025Q3

REPORT INFORMATION
  Report Type: Spontaneous
  Country: EU (occurrence: EU)
  Receive Date: 20250724
  Receipt Date: 20250724
  Transmission Date: 20251020
  Serious: Yes (Disabling)
  Sender: ANI
  Company Number: EU-ANIPHARMA-2025-BE-000012

PATIENT
  Age: 29 Year
  Sex: Female

DRUGS (1)
  1. CANDESARTAN CILEXETIL [Suspect]
     Active Substance: CANDESARTAN CILEXETIL
     Indication: Migraine
     Route: 048
     Dates: start: 20250529, end: 20250624

REACTIONS (3)
  - Weight increased [Recovered/Resolved with Sequelae]
  - Hunger [Recovering/Resolving]
  - Product use in unapproved indication [Recovered/Resolved]

NARRATIVE: CASE EVENT DATE: 20250601
